FAERS Safety Report 5907534-9 (Version None)
Quarter: 2008Q4

REPORT INFORMATION
  Report Type: 
  Country: None (occurrence: None)
  Receive Date: 20081003
  Receipt Date: 20081002
  Transmission Date: 20090506
  Serious: Yes (Other)
  Sender: FDA-Public Use
  Company Number: A0712122A

PATIENT
  Age: 48 Year
  Weight: 126.4 kg

DRUGS (2)
  1. ALLI [Suspect]
     Indication: WEIGHT LOSS DIET
     Route: 048
     Dates: start: 20080102
  2. INSULIN [Concomitant]

REACTIONS (16)
  - ABDOMINAL DISTENSION [None]
  - BLOOD GLUCOSE FLUCTUATION [None]
  - BLOOD GLUCOSE INCREASED [None]
  - DRUG INEFFECTIVE [None]
  - EATING DISORDER [None]
  - FATIGUE [None]
  - FOOD CRAVING [None]
  - GASTROENTERITIS VIRAL [None]
  - GASTROINTESTINAL DISORDER [None]
  - HYPERHIDROSIS [None]
  - MUSCULOSKELETAL DISCOMFORT [None]
  - OEDEMA [None]
  - PNEUMONIA [None]
  - POLYMENORRHOEA [None]
  - TEMPERATURE REGULATION DISORDER [None]
  - WEIGHT FLUCTUATION [None]
